FAERS Safety Report 7205989-3 (Version None)
Quarter: 2011Q1

REPORT INFORMATION
  Report Type: 
  Country: None (occurrence: None)
  Receive Date: 20110103
  Receipt Date: 20101220
  Transmission Date: 20110831
  Serious: No
  Sender: FDA-Public Use
  Company Number: US-BIOGENIDEC-2010BI045007

PATIENT
  Age: 53 Year
  Sex: Male

DRUGS (2)
  1. TYSABRI [Suspect]
     Indication: MULTIPLE SCLEROSIS
     Route: 042
     Dates: start: 20101219
  2. TYSABRI [Suspect]
     Route: 042
     Dates: start: 20100307, end: 20100905

REACTIONS (5)
  - GAIT DISTURBANCE [None]
  - SLUGGISHNESS [None]
  - FATIGUE [None]
  - MOBILITY DECREASED [None]
  - PAIN [None]
